FAERS Safety Report 10561655 (Version 5)
Quarter: 2015Q3

REPORT INFORMATION
  Report Type: Report from Study
  Country: GB (occurrence: GB)
  Receive Date: 20141103
  Receipt Date: 20150724
  Transmission Date: 20151125
  Serious: Yes (Life-Threatening, Hospitalization, Other)
  Sender: FDA-Public Use
  Company Number: GB-GILEAD-2014-0121018

PATIENT
  Age: 76 Year
  Sex: Male
  Weight: 92.6 kg

DRUGS (18)
  1. OFATUMUMAB [Suspect]
     Active Substance: OFATUMUMAB
     Indication: CHRONIC LYMPHOCYTIC LEUKAEMIA
     Dosage: 300 MG, Q1MONTH
     Route: 042
     Dates: start: 20141013, end: 20141013
  2. G-CSF [Concomitant]
     Active Substance: GRANULOCYTE COLONY-STIMULATING FACTOR NOS
     Indication: CHRONIC LYMPHOCYTIC LEUKAEMIA
     Dosage: UNK
     Dates: start: 20141013
  3. RAMIPRIL. [Concomitant]
     Active Substance: RAMIPRIL
     Indication: ESSENTIAL HYPERTENSION
     Dosage: UNK
     Dates: start: 20110615
  4. ACICLOVIR [Concomitant]
     Active Substance: ACYCLOVIR
     Indication: CHRONIC LYMPHOCYTIC LEUKAEMIA
     Dosage: UNK
     Dates: start: 20141013
  5. CHLORPHENAMINE [Concomitant]
     Active Substance: CHLORPHENIRAMINE MALEATE
     Indication: CHRONIC LYMPHOCYTIC LEUKAEMIA
     Dosage: UNK
     Dates: start: 20141013, end: 20141013
  6. IDELALISIB [Suspect]
     Active Substance: IDELALISIB
     Indication: CHRONIC LYMPHOCYTIC LEUKAEMIA
     Dosage: 150 MG, QD
     Route: 048
     Dates: start: 20141013, end: 20141018
  7. ALLOPURINOL. [Concomitant]
     Active Substance: ALLOPURINOL
  8. METFORMIN [Concomitant]
     Active Substance: METFORMIN HYDROCHLORIDE
     Indication: TYPE 2 DIABETES MELLITUS
     Dosage: 1500 MG, UNK
     Dates: start: 20070615, end: 20141018
  9. PRAVASTATIN [Concomitant]
     Active Substance: PRAVASTATIN\PRAVASTATIN SODIUM
     Indication: CHRONIC KIDNEY DISEASE
     Dosage: 20 MG, UNK
     Dates: start: 20070615
  10. PIZOTIFEN [Concomitant]
     Active Substance: PIZOTYLINE
     Indication: VERTIGO
     Dosage: UNK
     Dates: start: 20140815
  11. BENDAMUSTINE [Suspect]
     Active Substance: BENDAMUSTINE
     Indication: CHRONIC LYMPHOCYTIC LEUKAEMIA
     Dosage: 14.5 MG, Q1MONTH
     Route: 042
     Dates: start: 20141013, end: 20141014
  12. METOCLOPRAMIDE. [Concomitant]
     Active Substance: METOCLOPRAMIDE
     Indication: CHRONIC LYMPHOCYTIC LEUKAEMIA
     Dosage: 8 MG, UNK
     Route: 048
     Dates: start: 20141013
  13. COTRIMOXAZOLE [Concomitant]
     Active Substance: SULFAMETHOXAZOLE\TRIMETHOPRIM
     Indication: CHRONIC LYMPHOCYTIC LEUKAEMIA
     Dosage: UNK
     Dates: start: 20141013, end: 20141104
  14. BETAHISTINE DIHYDROCHLORIDE [Concomitant]
     Active Substance: BETAHISTINE
     Indication: VERTIGO
     Dosage: UNK
     Dates: start: 20140715
  15. GLICLAZIDE [Concomitant]
     Active Substance: GLICLAZIDE
     Indication: TYPE 2 DIABETES MELLITUS
     Dosage: 40 MG, UNK
     Dates: start: 20110615
  16. ALFUZOSIN [Concomitant]
     Active Substance: ALFUZOSIN
     Indication: BENIGN PROSTATIC HYPERPLASIA
     Dosage: UNK
     Dates: start: 20070615, end: 20141019
  17. PARACETAMOL [Concomitant]
     Active Substance: ACETAMINOPHEN
     Indication: CHRONIC LYMPHOCYTIC LEUKAEMIA
     Dosage: UNK
     Dates: start: 20141013, end: 20141013
  18. HYDROCORTISONE. [Concomitant]
     Active Substance: HYDROCORTISONE
     Indication: CHRONIC LYMPHOCYTIC LEUKAEMIA
     Dosage: 100 MG, UNK
     Route: 042
     Dates: start: 20141013, end: 20141013

REACTIONS (2)
  - Sepsis [Recovered/Resolved]
  - Tumour lysis syndrome [Recovered/Resolved]

NARRATIVE: CASE EVENT DATE: 20141018
